FAERS Safety Report 10465765 (Version 1)
Quarter: 2014Q3

REPORT INFORMATION
  Report Type: Spontaneous
  Country: JP (occurrence: JP)
  Receive Date: 20140921
  Receipt Date: 20140921
  Transmission Date: 20150326
  Serious: Yes (Hospitalization)
  Sender: FDA-Public Use
  Company Number: PHHY2014JP119636

PATIENT
  Age: 77 Year
  Sex: Male

DRUGS (2)
  1. RIVASTIGMIN [Suspect]
     Active Substance: RIVASTIGMINE
     Dosage: 6.9 MG PER 24 HOURS (13.5 MG ONCE A DAY)
     Route: 062
  2. RIVASTIGMIN [Suspect]
     Active Substance: RIVASTIGMINE
     Dosage: 4.6MG/24 HOURS (9 MG, ONCE A DAY)
     Route: 062

REACTIONS (6)
  - Disorientation [Unknown]
  - Road traffic accident [Unknown]
  - Amnesia [Unknown]
  - Poriomania [Unknown]
  - Anger [Unknown]
  - Abnormal behaviour [Unknown]
